FAERS Safety Report 7305712-8 (Version None)
Quarter: 2011Q1

REPORT INFORMATION
  Report Type: 
  Country: None (occurrence: None)
  Receive Date: 20110210
  Receipt Date: 20110126
  Transmission Date: 20110831
  Serious: Yes (Hospitalization)
  Sender: FDA-Public Use
  Company Number: 2011-024

PATIENT
  Age: 66 Year
  Sex: Female

DRUGS (3)
  1. BACLOFEN [Suspect]
     Indication: MUSCLE SPASTICITY
     Dosage: INTRATHECAL
     Route: 037
  2. DULOXETINE [Concomitant]
  3. PRIALT [Suspect]
     Indication: PAIN
     Dosage: 0.09 UG/HR; INTRATHECAL
     Route: 037

REACTIONS (12)
  - BLOOD PRESSURE FLUCTUATION [None]
  - FRONTOTEMPORAL DEMENTIA [None]
  - DEPRESSION [None]
  - DISINHIBITION [None]
  - PERSECUTORY DELUSION [None]
  - HEART RATE ABNORMAL [None]
  - DISTURBANCE IN ATTENTION [None]
  - LOGORRHOEA [None]
  - POVERTY OF SPEECH [None]
  - LEARNING DISORDER [None]
  - HYPOMANIA [None]
  - APATHY [None]
